FAERS Safety Report 7605472-7 (Version None)
Quarter: 2011Q3

REPORT INFORMATION
  Report Type: 
  Country: None (occurrence: None)
  Receive Date: 20110705
  Receipt Date: 20110620
  Transmission Date: 20111222
  Serious: Yes (Hospitalization, Other)
  Sender: FDA-Public Use
  Company Number: TCI2011A03513

PATIENT
  Age: 60 Year
  Sex: Male

DRUGS (6)
  1. TAKEPRO CAPSULES 30 (LANSOPRAZOLE) [Concomitant]
  2. BASEN OD TABLERS 0.3 (VOGLIBOSE) [Concomitant]
  3. ACTOS [Suspect]
     Indication: DIABETES MELLITUS
     Dosage: SEE  IMAGE
     Route: 048
     Dates: start: 20100326
  4. ACTOS [Suspect]
     Indication: DIABETES MELLITUS
     Dosage: SEE  IMAGE
     Route: 048
     Dates: start: 20100309, end: 20100325
  5. ACTOS [Suspect]
     Indication: DIABETES MELLITUS
     Dosage: SEE  IMAGE
     Route: 048
     Dates: start: 20100303, end: 20100304
  6. FASTIC (NATEGLINIDE) [Concomitant]

REACTIONS (3)
  - PROSTATE CANCER [None]
  - BLADDER CANCER [None]
  - POLLAKIURIA [None]
